FAERS Safety Report 5244296-5 (Version None)
Quarter: 2007Q1

REPORT INFORMATION
  Report Type: 
  Country: None (occurrence: None)
  Receive Date: 20070222
  Receipt Date: 20070213
  Transmission Date: 20070707
  Serious: Yes (Other)
  Sender: FDA-Public Use
  Company Number: PHEH2007US02000

PATIENT

DRUGS (1)
  1. ZOMETA [Suspect]

REACTIONS (3)
  - IMPAIRED HEALING [None]
  - ORAL SOFT TISSUE DISORDER [None]
  - OSTEONECROSIS [None]
